FAERS Safety Report 8762451 (Version 1)
Quarter: 2012Q4

REPORT INFORMATION
  Report Type: 
  Country: US (occurrence: US)
  Receive Date: 20120830
  Receipt Date: 20120830
  Transmission Date: 20130627
  Serious: No
  Sender: FDA-Public Use
  Company Number: US-PFIZER INC-2012210233

PATIENT
  Sex: Male

DRUGS (2)
  1. ADVIL EXTRA STRENGTH [Suspect]
     Dosage: UNK
  2. ADVIL EXTRA STRENGTH [Suspect]
     Dosage: 2 caplets within 4 hours

REACTIONS (2)
  - Incorrect dose administered [Unknown]
  - Vision blurred [Unknown]
